FAERS Safety Report 11319524 (Version 2)
Quarter: 2015Q3

REPORT INFORMATION
  Report Type: Report from Study
  Country: US (occurrence: US)
  Receive Date: 20150729
  Receipt Date: 20150824
  Transmission Date: 20151125
  Serious: Yes (Hospitalization)
  Sender: FDA-Public Use
  Company Number: US-ABBVIE-15K-163-1433732-00

PATIENT
  Age: 36 Year
  Sex: Female
  Weight: 88.08 kg

DRUGS (2)
  1. ESTRADIOL. [Concomitant]
     Active Substance: ESTRADIOL
     Indication: OESTROGEN REPLACEMENT THERAPY
  2. HUMIRA [Suspect]
     Active Substance: ADALIMUMAB
     Indication: CROHN^S DISEASE
     Route: 058
     Dates: start: 20150227, end: 20150605

REACTIONS (6)
  - Gastrointestinal injury [Recovering/Resolving]
  - Abscess intestinal [Unknown]
  - Intestinal mass [Recovered/Resolved]
  - Drug ineffective [Unknown]
  - Gastrointestinal wall thickening [Unknown]
  - Pain [Unknown]

NARRATIVE: CASE EVENT DATE: 2015
